FAERS Safety Report 7354000-2 (Version None)
Quarter: 2011Q1

REPORT INFORMATION
  Report Type: 
  Country: None (occurrence: None)
  Receive Date: 20110315
  Receipt Date: 20110304
  Transmission Date: 20110831
  Serious: Yes (Hospitalization)
  Sender: FDA-Public Use
  Company Number: PHHY2011US18341

PATIENT
  Sex: Female

DRUGS (5)
  1. BACLOFEN [Concomitant]
     Dosage: UNK
  2. ZOLOFT [Concomitant]
     Dosage: UNK
  3. GILENYA [Suspect]
     Indication: MULTIPLE SCLEROSIS
     Dosage: 0.5 MG, QD
     Route: 048
     Dates: start: 20101230
  4. NUCYNTA [Suspect]
     Indication: BACK PAIN
     Dosage: UNK
  5. SINGULAIR [Concomitant]
     Dosage: UNK

REACTIONS (3)
  - FALL [None]
  - BACK PAIN [None]
  - DIZZINESS [None]
